FAERS Safety Report 10015846 (Version 3)
Quarter: 2014Q2

REPORT INFORMATION
  Report Type: Spontaneous
  Country: US (occurrence: US)
  Receive Date: 20140317
  Receipt Date: 20140424
  Transmission Date: 20141212
  Serious: Yes (Other)
  Sender: FDA-Public Use
  Company Number: US-GLAXOSMITHKLINE-A1065129A

PATIENT
  Sex: Female

DRUGS (1)
  1. ADVAIR [Suspect]
     Indication: RESPIRATORY DISORDER
     Route: 065
     Dates: start: 20100831

REACTIONS (6)
  - Neoplasm malignant [Unknown]
  - Diabetes mellitus [Unknown]
  - Chronic obstructive pulmonary disease [Unknown]
  - Crohn^s disease [Unknown]
  - Hypertension [Unknown]
  - Surgery [Unknown]
